FAERS Safety Report 23584947 (Version 1)
Quarter: 2024Q1

REPORT INFORMATION
  Report Type: Spontaneous
  Country: CA (occurrence: CA)
  Receive Date: 20240301
  Receipt Date: 20240301
  Transmission Date: 20240410
  Serious: Yes (Other)
  Sender: FDA-Public Use
  Company Number: CA-TEVA-VS-3161216

PATIENT
  Age: 44 Year
  Sex: Male
  Weight: 66 kg

DRUGS (1)
  1. TENOFOVIR [Suspect]
     Active Substance: TENOFOVIR
     Indication: Hepatitis B
     Dosage: EQUIVALENT TO 245 MG TENOFOVIR DISOPROXIL
     Route: 048

REACTIONS (1)
  - Rash pruritic [Recovering/Resolving]
